FAERS Safety Report 5122043-5 (Version None)
Quarter: 2006Q4

REPORT INFORMATION
  Report Type: 
  Country: None (occurrence: None)
  Receive Date: 20061006
  Receipt Date: 20060907
  Transmission Date: 20070319
  Serious: Yes (Other)
  Sender: FDA-Public Use
  Company Number: US-NOVOPROD-256698

PATIENT
  Age: 63 Year
  Sex: Female
  Weight: 86 kg

DRUGS (3)
  1. NOVOLOG MIX 70/30 [Suspect]
     Indication: INSULIN-REQUIRING TYPE II DIABETES MELLITUS
     Dosage: 90 IU, QD
     Route: 058
     Dates: start: 20040101
  2. ASPIRIN [Concomitant]
     Indication: ILL-DEFINED DISORDER
     Dosage: 81 MG, QD
     Route: 048
  3. ACTOS [Concomitant]
     Indication: INSULIN-REQUIRING TYPE II DIABETES MELLITUS

REACTIONS (1)
  - MEDICAL DEVICE COMPLICATION [None]
